FAERS Safety Report 4972871-1 (Version None)
Quarter: 2006Q2

REPORT INFORMATION
  Report Type: 
  Country: None (occurrence: None)
  Receive Date: 20060410
  Receipt Date: 20060323
  Transmission Date: 20061013
  Serious: Yes (Other)
  Sender: FDA-Public Use
  Company Number: US200603005848

PATIENT
  Age: 57 Year
  Sex: Male

DRUGS (2)
  1. ZYPREXA [Suspect]
     Indication: SCHIZOPHRENIA
     Dosage: 7.5 MG,
     Dates: end: 20060201
  2. ZYPREXA [Suspect]
     Indication: SCHIZOPHRENIA
     Dosage: 7.5 MG,
     Dates: start: 20050101

REACTIONS (4)
  - EPISTAXIS [None]
  - GASTRIC DISORDER [None]
  - HAEMORRHAGE [None]
  - LIVER DISORDER [None]
